FAERS Safety Report 14921850 (Version 1)
Quarter: 2018Q2

REPORT INFORMATION
  Report Type: Spontaneous
  Country: FR (occurrence: FR)
  Receive Date: 20180522
  Receipt Date: 20180522
  Transmission Date: 20180711
  Serious: Yes (Other)
  Sender: FDA-Public Use
  Company Number: FR-MERCK KGAA-2048206

PATIENT
  Age: 27 Year
  Sex: Female

DRUGS (1)
  1. NOVOTHYROX [Suspect]
     Active Substance: LEVOTHYROXINE SODIUM
     Indication: HYPOTHYROIDISM
     Dates: start: 2017

REACTIONS (42)
  - Affect lability [None]
  - Stress [None]
  - Psychiatric symptom [None]
  - Social avoidant behaviour [None]
  - Hypoaesthesia [None]
  - Decreased activity [None]
  - Asthenia [None]
  - Crying [None]
  - Feeling cold [None]
  - Impatience [None]
  - Fatigue [None]
  - Arthralgia [None]
  - Negative thoughts [None]
  - Sleep disorder [None]
  - Mental impairment [None]
  - Nightmare [None]
  - Affective disorder [None]
  - Musculoskeletal stiffness [None]
  - Memory impairment [None]
  - Heart rate increased [None]
  - Diarrhoea [None]
  - Vertigo [None]
  - Lethargy [None]
  - Anxiety [None]
  - Self esteem decreased [None]
  - Somnolence [None]
  - Insomnia [None]
  - Autoimmune disorder [None]
  - Gastrointestinal disorder [None]
  - Decreased interest [None]
  - Constipation [None]
  - Blood thyroid stimulating hormone increased [None]
  - Immunodeficiency [None]
  - Myalgia [None]
  - Discomfort [None]
  - General physical health deterioration [None]
  - Depression [None]
  - Antisocial personality disorder [None]
  - Headache [None]
  - Irritability [None]
  - Suffocation feeling [None]
  - Aggression [None]

NARRATIVE: CASE EVENT DATE: 2017
